FAERS Safety Report 19837641 (Version 1)
Quarter: 2021Q3

REPORT INFORMATION
  Report Type: Spontaneous
  Country: ES (occurrence: ES)
  Receive Date: 20210914
  Receipt Date: 20210914
  Transmission Date: 20211014
  Serious: Yes (Other)
  Sender: FDA-Public Use
  Company Number: ES-INCYTE CORPORATION-2021IN008225

PATIENT

DRUGS (1)
  1. JAKAVI [Suspect]
     Active Substance: RUXOLITINIB
     Indication: GRAFT VERSUS HOST DISEASE IN GASTROINTESTINAL TRACT
     Dosage: UNK, BID
     Route: 065

REACTIONS (5)
  - Enterococcal infection [Unknown]
  - Product use in unapproved indication [Unknown]
  - Transaminases increased [Unknown]
  - Product use issue [Unknown]
  - Therapy partial responder [Unknown]
